FAERS Safety Report 9328136 (Version 1)
Quarter: 2013Q2

REPORT INFORMATION
  Report Type: Spontaneous
  Country: US (occurrence: US)
  Receive Date: 20130604
  Receipt Date: 20130604
  Transmission Date: 20140414
  Serious: Yes (Other)
  Sender: FDA-Public Use
  Company Number: US-SANOFI-AVENTIS-2012SA033533

PATIENT
  Age: 66 Year
  Sex: Female
  Weight: 84 kg

DRUGS (8)
  1. LANTUS [Suspect]
     Indication: TYPE 2 DIABETES MELLITUS
     Dosage: DOSE:50 UNIT(S)
     Route: 058
     Dates: start: 20110907
  2. SOLOSTAR [Suspect]
     Indication: TYPE 2 DIABETES MELLITUS
     Dates: start: 20110907
  3. NOVOLOG [Suspect]
     Indication: TYPE 2 DIABETES MELLITUS
  4. OMEPRAZOLE [Concomitant]
     Indication: GASTROOESOPHAGEAL REFLUX DISEASE
  5. PAXIL [Concomitant]
     Indication: DEPRESSION
  6. LISINOPRIL [Concomitant]
     Indication: HYPERTENSION
     Dosage: DOSE:1 UNIT(S)
  7. NORVASC /DEN/ [Concomitant]
     Indication: HYPERTENSION
     Dosage: DOSE:2 UNIT(S)
  8. METOPROLOL [Concomitant]
     Indication: HYPERTENSION
     Dosage: DOSE:2 UNIT(S)

REACTIONS (4)
  - Cataract [Unknown]
  - Visual impairment [Unknown]
  - Weight increased [Unknown]
  - Fluid retention [Unknown]
